FAERS Safety Report 22193350 (Version 2)
Quarter: 2023Q2

REPORT INFORMATION
  Report Type: Spontaneous
  Country: IT (occurrence: IT)
  Receive Date: 20230410
  Receipt Date: 20230504
  Transmission Date: 20230721
  Serious: Yes (Life-Threatening, Other)
  Sender: FDA-Public Use
  Company Number: PL-PFM-2023-01867

PATIENT
  Age: 5 Year
  Sex: Female

DRUGS (12)
  1. DEXAMETHASONE [Suspect]
     Active Substance: DEXAMETHASONE
     Indication: Hypophysitis
     Route: 065
     Dates: start: 2019, end: 2019
  2. METHOTREXATE [Suspect]
     Active Substance: METHOTREXATE
     Indication: Medulloblastoma
     Dosage: 8 G/M2, 1ST CYCLE
     Route: 065
     Dates: start: 2018, end: 2018
  3. VINORELBINE [Suspect]
     Active Substance: VINORELBINE TARTRATE
     Indication: Medulloblastoma
     Dosage: 1ST CYCLE
     Route: 065
     Dates: start: 2018, end: 2018
  4. VINORELBINE [Suspect]
     Active Substance: VINORELBINE TARTRATE
     Dosage: 3RD CYCLE
     Route: 065
     Dates: start: 2018, end: 2018
  5. VINORELBINE [Suspect]
     Active Substance: VINORELBINE TARTRATE
     Dosage: 4TH CYCLE
     Route: 065
     Dates: start: 2018, end: 2018
  6. VINORELBINE [Suspect]
     Active Substance: VINORELBINE TARTRATE
     Dosage: AT THE TIME OF PROTON CRANIO-SPINAL IRRADIATION
     Route: 065
     Dates: start: 2019, end: 2019
  7. VINORELBINE [Suspect]
     Active Substance: VINORELBINE TARTRATE
     Dosage: 30 MINUTE INFUSION, REPEATED EVERY 3 WEEKS
     Route: 065
     Dates: start: 2019, end: 2019
  8. ETOPOSIDE [Suspect]
     Active Substance: ETOPOSIDE
     Indication: Medulloblastoma
     Dosage: 2.4 G/M2, 2ND CYCLE
     Route: 065
     Dates: start: 2018, end: 2018
  9. CYCLOPHOSPHAMIDE [Suspect]
     Active Substance: CYCLOPHOSPHAMIDE
     Indication: Medulloblastoma
     Dosage: 4 G/M2, 3RD CYCLE
     Route: 065
     Dates: start: 2018, end: 2018
  10. CARBOPLATIN [Suspect]
     Active Substance: CARBOPLATIN
     Indication: Medulloblastoma
     Dosage: 4TH CYCLE
     Route: 065
     Dates: start: 2018, end: 2018
  11. LOMUSTINE [Suspect]
     Active Substance: LOMUSTINE
     Indication: Medulloblastoma
     Dosage: REPEATED EVERY 9 WEEKS
     Route: 048
     Dates: start: 2019, end: 2019
  12. THIOTEPA [Suspect]
     Active Substance: THIOTEPA
     Indication: Medulloblastoma
     Dosage: CONSOLIDATION PHASE
     Route: 065
     Dates: start: 2018, end: 2018

REACTIONS (4)
  - Cytomegalovirus chorioretinitis [Recovered/Resolved]
  - Cytomegalovirus infection reactivation [Recovered/Resolved]
  - Leukoencephalopathy [Unknown]
  - Blindness [Not Recovered/Not Resolved]

NARRATIVE: CASE EVENT DATE: 20190101
